FAERS Safety Report 6973813-X (Version None)
Quarter: 2010Q3

REPORT INFORMATION
  Report Type: 
  Country: None (occurrence: None)
  Receive Date: 20100909
  Receipt Date: 20100903
  Transmission Date: 20110219
  Serious: Yes (Hospitalization)
  Sender: FDA-Public Use
  Company Number: A0880286A

PATIENT
  Age: 28 Year
  Sex: Female

DRUGS (2)
  1. LAMICTAL [Suspect]
     Indication: MIGRAINE PROPHYLAXIS
     Dosage: 25MGD PER DAY
     Route: 048
     Dates: start: 20100801, end: 20100801
  2. UNKNOWN [Concomitant]

REACTIONS (3)
  - DRUG RASH WITH EOSINOPHILIA AND SYSTEMIC SYMPTOMS [None]
  - HEPATIC ENZYME INCREASED [None]
  - OFF LABEL USE [None]
